FAERS Safety Report 5885510-2 (Version None)
Quarter: 2008Q3

REPORT INFORMATION
  Report Type: 
  Country: None (occurrence: None)
  Receive Date: 20080916
  Receipt Date: 20080909
  Transmission Date: 20090109
  Serious: Yes (Hospitalization)
  Sender: FDA-Public Use
  Company Number: FR-AMGEN-US192237

PATIENT
  Sex: Female

DRUGS (11)
  1. ENBREL [Suspect]
     Indication: DRUG USE FOR UNKNOWN INDICATION
     Route: 058
     Dates: start: 20041001, end: 20060629
  2. ENBREL [Suspect]
     Route: 058
     Dates: start: 20060601, end: 20060629
  3. CORTANCYL [Concomitant]
     Dosage: 13 MG TOTAL DAILY
     Route: 048
     Dates: start: 20041001, end: 20060801
  4. CORTANCYL [Concomitant]
     Dosage: 15 MG TOTAL DAILY
     Route: 048
     Dates: start: 20060801
  5. NEXIUM [Concomitant]
     Dosage: UNKNOWN
     Route: 048
  6. CALCIUM CARBONATE/COLECALCIFEROL [Concomitant]
     Dosage: UNKNOWN
     Route: 048
  7. FOLIC ACID [Concomitant]
     Route: 048
  8. ISRADIPINE [Concomitant]
     Dosage: UNKNOWN
     Route: 048
  9. NOVATREX [Concomitant]
     Route: 048
     Dates: start: 20041001, end: 20060701
  10. NOVATREX [Concomitant]
     Route: 048
     Dates: start: 20060701
  11. FOSAMAX [Concomitant]
     Dosage: 70 MG EVERY 1 SEC
     Route: 048
     Dates: start: 20041001, end: 20060601

REACTIONS (8)
  - CATARACT [None]
  - CONDITION AGGRAVATED [None]
  - DNA ANTIBODY POSITIVE [None]
  - HIP ARTHROPLASTY [None]
  - NAIL BED INFECTION [None]
  - RASH [None]
  - RHEUMATOID ARTHRITIS [None]
  - SYSTEMIC LUPUS ERYTHEMATOSUS [None]
